FAERS Safety Report 8745668 (Version 2)
Quarter: 2012Q4

REPORT INFORMATION
  Report Type: 
  Country: US (occurrence: US)
  Receive Date: 20120826
  Receipt Date: 20121012
  Transmission Date: 20130627
  Serious: Yes (Hospitalization)
  Sender: FDA-Public Use
  Company Number: US-MYLANLABS-2012S1016950

PATIENT
  Age: 11 Year
  Sex: Male
  Weight: 26.6 kg

DRUGS (22)
  1. TACROLIMUS CAPSULES [Suspect]
     Indication: BONE MARROW TRANSPLANT
     Route: 048
     Dates: start: 20120517, end: 20120628
  2. TACROLIMUS CAPSULES [Suspect]
     Indication: GRAFT VERSUS HOST DISEASE
     Route: 048
     Dates: start: 20120517, end: 20120628
  3. TACROLIMUS CAPSULES [Suspect]
     Indication: BONE MARROW TRANSPLANT
     Route: 048
     Dates: start: 20120629, end: 20120725
  4. TACROLIMUS CAPSULES [Suspect]
     Indication: GRAFT VERSUS HOST DISEASE
     Route: 048
     Dates: start: 20120629, end: 20120725
  5. TACROLIMUS CAPSULES [Suspect]
     Indication: BONE MARROW TRANSPLANT
     Route: 048
     Dates: start: 20120813, end: 201208
  6. TACROLIMUS CAPSULES [Suspect]
     Indication: GRAFT VERSUS HOST DISEASE
     Route: 048
     Dates: start: 20120813, end: 201208
  7. PROGRAF [Suspect]
     Indication: BONE MARROW TRANSPLANT
     Route: 048
     Dates: start: 20120725, end: 20120810
  8. PROGRAF [Suspect]
     Indication: GRAFT VERSUS HOST DISEASE
     Route: 048
     Dates: start: 20120725, end: 20120810
  9. CELLCEPT /01275102/ [Concomitant]
  10. MORPHINE [Concomitant]
  11. CYPROHEPTADINE [Concomitant]
  12. ENOXAPARIN [Concomitant]
  13. TRAMADOL [Concomitant]
  14. ACYCLOVIR [Concomitant]
  15. FLOVENT [Concomitant]
  16. KYTRIL [Concomitant]
  17. PREVACID [Concomitant]
  18. KEPPRA [Concomitant]
  19. BACTRIM [Concomitant]
  20. PENICILLIN [Concomitant]
  21. MICAFUNGIN [Concomitant]
  22. MAGNESIUM OXIDE [Concomitant]

REACTIONS (7)
  - Immunosuppressant drug level decreased [Recovered/Resolved]
  - Pain in extremity [Not Recovered/Not Resolved]
  - Muscle spasms [Not Recovered/Not Resolved]
  - Wrong technique in drug usage process [Not Recovered/Not Resolved]
  - Off label use [Not Recovered/Not Resolved]
  - Arthralgia [Recovered/Resolved]
  - Muscular weakness [Recovered/Resolved]
